FAERS Safety Report 18928255 (Version 1)
Quarter: 2021Q1

REPORT INFORMATION
  Report Type: Spontaneous
  Country: NL (occurrence: FR)
  Receive Date: 20210223
  Receipt Date: 20210223
  Transmission Date: 20210420
  Serious: Yes (Other)
  Sender: FDA-Public Use
  Company Number: NL-JNJFOC-20210237091

PATIENT
  Age: 35 Year
  Sex: Male

DRUGS (2)
  1. RIVAROXABAN [Suspect]
     Active Substance: RIVAROXABAN
     Indication: THROMBOSIS PROPHYLAXIS
  2. RIVAROXABAN [Suspect]
     Active Substance: RIVAROXABAN
     Indication: KNEE OPERATION
     Dosage: 15 MG, QD
     Route: 048

REACTIONS (3)
  - Hallucination [Unknown]
  - Incorrect dose administered [Unknown]
  - Product prescribing issue [Unknown]
